FAERS Safety Report 4370328-2 (Version None)
Quarter: 2004Q2

REPORT INFORMATION
  Report Type: 
  Country: None (occurrence: None)
  Receive Date: 20040603
  Receipt Date: 20040315
  Transmission Date: 20050107
  Serious: No
  Sender: FDA-Public Use
  Company Number: US-BRISTOL-MYERS SQUIBB COMPANY-12534707

PATIENT
  Age: 25 Year
  Sex: Male

DRUGS (5)
  1. ABILIFY [Suspect]
     Indication: SCHIZOPHRENIA, PARANOID TYPE
     Dosage: DECREASED TO 5 MG/DAY
     Route: 048
  2. CONCERTA [Concomitant]
  3. RISPERDAL [Concomitant]
  4. PROZAC [Concomitant]
  5. ATIVAN [Concomitant]

REACTIONS (3)
  - ANXIETY [None]
  - DYSTONIA [None]
  - THROAT TIGHTNESS [None]
